FAERS Safety Report 18553860 (Version 1)
Quarter: 2020Q4

REPORT INFORMATION
  Report Type: Spontaneous
  Country: CN (occurrence: CN)
  Receive Date: 20201127
  Receipt Date: 20201127
  Transmission Date: 20210114
  Serious: Yes (Hospitalization)
  Sender: FDA-Public Use
  Company Number: CN-PFIZER INC-2020465819

PATIENT
  Age: 58 Year
  Sex: Male
  Weight: 65 kg

DRUGS (6)
  1. BUTYLPHTHALIDE AND SODIUM CHLORIDE [Concomitant]
     Active Substance: BUTYLPHTHALIDE
     Indication: CEREBRAL INFARCTION
     Dosage: 25.000 MG, 2X/DAY
     Route: 041
     Dates: start: 20201022, end: 20201117
  2. TAN RE QING ZHU SHE YE [Concomitant]
     Indication: PNEUMONIA
     Dosage: 30.000 ML, 1X/DAY
     Route: 041
     Dates: start: 20201102, end: 20201113
  3. SULPERAZON [Suspect]
     Active Substance: CEFOPERAZONE SODIUM\SULBACTAM SODIUM
     Indication: INFECTION
     Dosage: 3.000 G, 3X/DAY
     Route: 041
     Dates: start: 20201022, end: 20201117
  4. LAI LI XIN [Suspect]
     Active Substance: LEVOFLOXACIN
     Indication: INFECTION
     Dosage: 0.500 G, 1X/DAY
     Route: 041
     Dates: start: 20201102, end: 20201106
  5. BETALOC ZOK [Concomitant]
     Active Substance: METOPROLOL SUCCINATE
     Indication: HYPERTENSION
     Dosage: 23.250 MG, 1X/DAY
     Route: 048
     Dates: start: 20201102, end: 20201120
  6. LINEZOLID. [Suspect]
     Active Substance: LINEZOLID
     Indication: INFECTION
     Dosage: 0.600 G, 2X/DAY
     Route: 041
     Dates: start: 20201022, end: 20201102

REACTIONS (2)
  - Diarrhoea [Unknown]
  - Candida infection [Unknown]

NARRATIVE: CASE EVENT DATE: 20201109
